FAERS Safety Report 18677776 (Version 1)
Quarter: 2020Q4

REPORT INFORMATION
  Report Type: Spontaneous
  Country: US (occurrence: US)
  Receive Date: 20201229
  Receipt Date: 20201229
  Transmission Date: 20210114
  Serious: No
  Sender: FDA-Public Use
  Company Number: US-SOMERSET-2020-US-000213

PATIENT
  Age: 53 Year
  Sex: Female

DRUGS (4)
  1. CYANOCOBALAMIN INJECTION - 1 ML [Suspect]
     Active Substance: CYANOCOBALAMIN
     Dosage: PATIENT IS PRESCRIBED 1 ML INJECTION 1 X MONTH
     Route: 023
     Dates: start: 20200518, end: 20200518
  2. PROMETHIZINE [Concomitant]
     Active Substance: PROMETHAZINE HYDROCHLORIDE
     Dosage: 1 - 4 TIMES PER DAY
     Route: 054
  3. VITAMIN D [Suspect]
     Active Substance: VITAMIN D NOS
     Route: 048
  4. DIAZEPAM. [Suspect]
     Active Substance: DIAZEPAM
     Dosage: 1 Q HS
     Route: 048

REACTIONS (2)
  - Injection site pain [Recovered/Resolved]
  - Headache [Unknown]

NARRATIVE: CASE EVENT DATE: 20200519
